FAERS Safety Report 25785617 (Version 1)
Quarter: 2025Q3

REPORT INFORMATION
  Report Type: Spontaneous
  Country: CA (occurrence: CA)
  Receive Date: 20250910
  Receipt Date: 20250910
  Transmission Date: 20251021
  Serious: Yes (Hospitalization)
  Sender: TEVA
  Company Number: CA-TEVA-VS-3370772

PATIENT
  Age: 7 Year
  Sex: Female
  Weight: 21 kg

DRUGS (4)
  1. SULFAMETHOXAZOLE\TRIMETHOPRIM [Suspect]
     Active Substance: SULFAMETHOXAZOLE\TRIMETHOPRIM
     Indication: Pharyngitis
     Dosage: DOSE FORM: NOT SPECIFIED
     Route: 048
  2. VENTOLIN [Concomitant]
     Active Substance: ALBUTEROL SULFATE
     Indication: Product used for unknown indication
  3. DESONIDE [Concomitant]
     Active Substance: DESONIDE
     Indication: Product used for unknown indication
  4. ALVESCO [Concomitant]
     Active Substance: CICLESONIDE
     Indication: Product used for unknown indication

REACTIONS (5)
  - Rash morbilliform [Recovering/Resolving]
  - Type IV hypersensitivity reaction [Recovering/Resolving]
  - Erythema [Recovering/Resolving]
  - Periorbital oedema [Recovering/Resolving]
  - Rash [Recovering/Resolving]
